FAERS Safety Report 11538952 (Version 1)
Quarter: 2015Q3

REPORT INFORMATION
  Report Type: Spontaneous
  Country: US (occurrence: None)
  Receive Date: 20150922
  Receipt Date: 20150922
  Transmission Date: 20151125
  Serious: Yes (Other)
  Sender: FDA-Public Use
  Company Number: None

PATIENT
  Age: 27 Year
  Sex: Female

DRUGS (1)
  1. ENBREL [Suspect]
     Active Substance: ETANERCEPT
     Indication: RHEUMATOID ARTHRITIS
     Dosage: DOSE FORM: INJECTABLE?(APPRLOX START DATE) AND STILL
     Route: 058
     Dates: start: 20150715

REACTIONS (1)
  - Injection site erythema [None]

NARRATIVE: CASE EVENT DATE: 20150715
